FAERS Safety Report 6249372-6 (Version None)
Quarter: 2009Q2

REPORT INFORMATION
  Report Type: 
  Country: None (occurrence: None)
  Receive Date: 20090629
  Receipt Date: 20090618
  Transmission Date: 20091009
  Serious: Yes (Hospitalization)
  Sender: FDA-Public Use
  Company Number: US-BIOGENIDEC-2008BI018279

PATIENT
  Age: 52 Year
  Sex: Female

DRUGS (2)
  1. AVONEX [Suspect]
     Indication: MULTIPLE SCLEROSIS
     Route: 030
     Dates: start: 20040101
  2. AVONEX [Suspect]
     Route: 030
     Dates: start: 20010101, end: 20021201

REACTIONS (6)
  - ABDOMINAL OPERATION [None]
  - ASTHMA [None]
  - BASAL CELL CARCINOMA [None]
  - HAEMORRHOIDS [None]
  - RECTAL PROLAPSE [None]
  - VIRAL INFECTION [None]
